FAERS Safety Report 20379721 (Version 1)
Quarter: 2022Q1

REPORT INFORMATION
  Report Type: Spontaneous
  Country: FR (occurrence: FR)
  Receive Date: 20220126
  Receipt Date: 20220126
  Transmission Date: 20220424
  Serious: Yes (Other)
  Sender: FDA-Public Use
  Company Number: FR-ELI_LILLY_AND_COMPANY-FR202108007756

PATIENT
  Sex: Male

DRUGS (1)
  1. TERIPARATIDE [Suspect]
     Active Substance: TERIPARATIDE
     Indication: Osteoporosis
     Dosage: 20 UG, UNKNOWN
     Route: 065
     Dates: start: 20210121

REACTIONS (6)
  - Suicidal ideation [Unknown]
  - Depression [Unknown]
  - Fatigue [Unknown]
  - Urticaria [Unknown]
  - Urine oxalate increased [Unknown]
  - Product dose omission issue [Unknown]
